FAERS Safety Report 6718933-X (Version None)
Quarter: 2010Q2

REPORT INFORMATION
  Report Type: 
  Country: None (occurrence: None)
  Receive Date: 20100511
  Receipt Date: 20100505
  Transmission Date: 20101027
  Serious: Yes (Life-Threatening, Other)
  Sender: FDA-Public Use
  Company Number: NL-ROXANE LABORATORIES, INC.-2009-DE-02418GD

PATIENT
  Age: 2 Day
  Sex: Male
  Weight: 3.1 kg

DRUGS (6)
  1. MORPHINE [Suspect]
     Indication: POSTOPERATIVE ANALGESIA
     Dosage: 100 MCG/KG
     Route: 042
  2. MORPHINE [Suspect]
     Dosage: CONTINUOUS INFUSION AT 4.4 MCG/KG/H
     Route: 042
  3. FENTANYL [Suspect]
     Indication: INDUCTION OF ANAESTHESIA
     Dosage: 9 MCG/KG
  4. THIOPENTAL SODIUM [Concomitant]
     Indication: INDUCTION OF ANAESTHESIA
  5. CISATRACURIUM [Concomitant]
     Indication: INDUCTION OF ANAESTHESIA
  6. ISOFLURANE [Concomitant]
     Indication: MAINTENANCE OF ANAESTHESIA

REACTIONS (4)
  - ACUTE RESPIRATORY FAILURE [None]
  - LARYNGOSPASM [None]
  - MUSCLE RIGIDITY [None]
  - SOMNOLENCE [None]
